FAERS Safety Report 4337175-9 (Version None)
Quarter: 2004Q2

REPORT INFORMATION
  Report Type: 
  Country: None (occurrence: None)
  Receive Date: 20040408
  Receipt Date: 20040329
  Transmission Date: 20050107
  Serious: Yes (Hospitalization, Other)
  Sender: FDA-Public Use
  Company Number: HQWYE198029MAR04

PATIENT
  Age: 32 Year
  Sex: Female

DRUGS (5)
  1. EUPANTOL (PANTOPRAZOLE, TABLET, DELAYED RELEASE) [Suspect]
     Indication: PROPHYLAXIS
     Dosage: 40 MG 1X PER 1 DAY ORAL
     Route: 048
     Dates: start: 20040202, end: 20040213
  2. ASPIRIN [Suspect]
     Indication: CHRONIC SINUSITIS
     Dosage: 1000 MG 3X PER 1 DAY ORAL
     Route: 048
     Dates: start: 20040119, end: 20040122
  3. ASPIRIN [Suspect]
     Indication: PHARYNGITIS
     Dosage: 1000 MG 3X PER 1 DAY ORAL
     Route: 048
     Dates: start: 20040119, end: 20040122
  4. ASPIRIN [Suspect]
     Dosage: 1000 MG 1X PER 1 DAY ORAL
     Route: 048
     Dates: start: 20040127, end: 20040129
  5. VOLTAREN [Suspect]
     Indication: PERIARTHRITIS
     Dosage: 75 MG 2X PER 1 DAY ORAL
     Route: 048
     Dates: start: 20040202, end: 20040213

REACTIONS (3)
  - GASTRITIS HAEMORRHAGIC [None]
  - HAEMATEMESIS [None]
  - MELAENA [None]
